FAERS Safety Report 7383256-5 (Version None)
Quarter: 2011Q1

REPORT INFORMATION
  Report Type: 
  Country: None (occurrence: None)
  Receive Date: 20110325
  Receipt Date: 20110325
  Transmission Date: 20110831
  Serious: Yes (Hospitalization)
  Sender: FDA-Public Use
  Company Number: None

PATIENT
  Age: 89 Year
  Sex: Male
  Weight: 59.09 kg

DRUGS (8)
  1. BUMEX [Concomitant]
  2. LEVOTHYROXINE [Concomitant]
  3. COUMADIN [Suspect]
     Indication: MITRAL VALVE DISEASE
     Dosage: 4.5 MG MONDAYS PO CHRONIC
     Route: 048
  4. COUMADIN [Suspect]
     Indication: AORTIC VALVE REPLACEMENT
     Dosage: 4.5 MG MONDAYS PO CHRONIC
     Route: 048
  5. ARICEPT [Concomitant]
  6. DIGOXIN [Concomitant]
  7. COUMADIN [Suspect]
     Indication: MITRAL VALVE DISEASE
     Dosage: 3MG TWTHFSS PO  CHRONIC
     Route: 048
  8. COUMADIN [Suspect]
     Indication: AORTIC VALVE REPLACEMENT
     Dosage: 3MG TWTHFSS PO  CHRONIC
     Route: 048

REACTIONS (7)
  - FALL [None]
  - ANAEMIA [None]
  - OCCULT BLOOD POSITIVE [None]
  - HAEMATOMA [None]
  - INTERNATIONAL NORMALISED RATIO INCREASED [None]
  - FAILURE TO THRIVE [None]
  - COAGULOPATHY [None]
